FAERS Safety Report 23952985 (Version 2)
Quarter: 2024Q2

REPORT INFORMATION
  Report Type: Other
  Country: DE (occurrence: None)
  Receive Date: 20240608
  Receipt Date: 20240611
  Transmission Date: 20240715
  Serious: No
  Sender: FDA-Public Use
  Company Number: DE-ROCHE-3346748

PATIENT
  Age: 37 Year
  Sex: Female
  Weight: 63 kg

DRUGS (5)
  1. OCREVUS [Suspect]
     Active Substance: OCRELIZUMAB
     Indication: Relapsing multiple sclerosis
     Route: 042
     Dates: start: 20200811, end: 20200824
  2. OCREVUS [Suspect]
     Active Substance: OCRELIZUMAB
     Route: 042
     Dates: start: 20210311
  3. CHOLECALCIFEROL [Concomitant]
     Active Substance: CHOLECALCIFEROL
     Indication: Vitamin D deficiency
     Route: 048
     Dates: start: 20220915
  4. METHYLPREDNISOLONE [Concomitant]
     Active Substance: METHYLPREDNISOLONE
     Indication: Premedication
     Route: 042
     Dates: start: 20200811, end: 20200811
  5. DIMETHINDENE [Concomitant]
     Active Substance: DIMETHINDENE
     Indication: Premedication
     Route: 048
     Dates: start: 20200811, end: 20200811

REACTIONS (4)
  - Genital infection fungal [Recovered/Resolved]
  - Vulvovaginal mycotic infection [Recovered/Resolved]
  - Influenza [Recovered/Resolved]
  - Leukocyturia [Not Recovered/Not Resolved]

NARRATIVE: CASE EVENT DATE: 20230418
